FAERS Safety Report 9402860 (Version 2)
Quarter: 2013Q3

REPORT INFORMATION
  Report Type: Spontaneous
  Country: US (occurrence: US)
  Receive Date: 20130716
  Receipt Date: 20130729
  Transmission Date: 20140515
  Serious: No
  Sender: FDA-Public Use
  Company Number: US-009507513-1306USA012914

PATIENT
  Sex: Male
  Weight: 97.51 kg

DRUGS (8)
  1. VICTRELIS [Suspect]
     Indication: HEPATITIS C
     Dosage: 800 MG, TAKE 4 CAPSULES BY MOUTH THREE TIMES A DAY EVERY 7-9 HOURS, START ON WEEK 5
     Route: 048
  2. PEGASYS [Suspect]
  3. RIBATAB [Suspect]
     Route: 048
  4. XANAX TABLETS [Concomitant]
  5. OXYMORPHONE HYDROCHLORIDE [Concomitant]
  6. CELEXA [Concomitant]
  7. TRAMADOL HYDROCHLORIDE [Concomitant]
  8. TYLENOL [Concomitant]

REACTIONS (1)
  - Platelet count decreased [Unknown]
